FAERS Safety Report 11566549 (Version 1)
Quarter: 2015Q3

REPORT INFORMATION
  Report Type: Spontaneous
  Country: US (occurrence: US)
  Receive Date: 20150929
  Receipt Date: 20150929
  Transmission Date: 20151125
  Serious: Yes (Other)
  Sender: FDA-Public Use
  Company Number: US-JNJCP-30000305561

PATIENT
  Age: 35 Year
  Sex: Female
  Weight: 70 kg

DRUGS (1)
  1. NEUTROGENA BEACH DEFENSE WATER PLUS SUN BARRIER SUNSCREEN BROAD SPECTRUM SPF70 [Suspect]
     Active Substance: AVOBENZONE\HOMOSALATE\OCTISALATE\OCTOCRYLENE\OXYBENZONE
     Indication: PROPHYLAXIS
     Dosage: APPLIED LIBERALLY, ONCE
     Route: 061
     Dates: start: 20150528, end: 20150601

REACTIONS (2)
  - Psoriasis [Not Recovered/Not Resolved]
  - Subcorneal pustular dermatosis [Not Recovered/Not Resolved]

NARRATIVE: CASE EVENT DATE: 20150601
